FAERS Safety Report 7308120-9 (Version None)
Quarter: 2011Q1

REPORT INFORMATION
  Report Type: 
  Country: None (occurrence: None)
  Receive Date: 20110223
  Receipt Date: 20110218
  Transmission Date: 20110831
  Serious: Yes (Death)
  Sender: FDA-Public Use
  Company Number: FR-ROCHE-756183

PATIENT
  Sex: Female
  Weight: 112 kg

DRUGS (10)
  1. UVEDOSE [Concomitant]
  2. ROACTEMRA [Suspect]
     Indication: RHEUMATOID ARTHRITIS
     Dosage: FREQUENCY: CYCLE
     Route: 042
     Dates: start: 20101210, end: 20110107
  3. CELEBREX [Concomitant]
  4. MOPRAL [Concomitant]
  5. STILNOX [Concomitant]
  6. METHOTREXATE [Concomitant]
     Indication: RHEUMATOID ARTHRITIS
     Dosage: DOSAGE 25
     Route: 058
     Dates: start: 20040101
  7. PARACETAMOL [Concomitant]
  8. SPECIAFOLDINE [Concomitant]
     Dosage: FREQUENCY:WEEKLY
     Route: 048
     Dates: start: 20040101
  9. TAHOR [Concomitant]
     Dates: start: 20101210
  10. CORTANCYL [Concomitant]
     Route: 048
     Dates: start: 20040101

REACTIONS (1)
  - SUDDEN DEATH [None]
